FAERS Safety Report 8851464 (Version 3)
Quarter: 2012Q4

REPORT INFORMATION
  Report Type: 
  Country: US (occurrence: US)
  Receive Date: 20121022
  Receipt Date: 20121125
  Transmission Date: 20130627
  Serious: No
  Sender: FDA-Public Use
  Company Number: US-009507513-1210USA006871

PATIENT
  Sex: Male
  Weight: 86.17 kg

DRUGS (1)
  1. SAPHRIS [Suspect]
     Indication: BIPOLAR DISORDER
     Dosage: 10 mg, UNK
     Route: 060

REACTIONS (1)
  - Glossodynia [Recovered/Resolved]
